FAERS Safety Report 17334309 (Version 1)
Quarter: 2020Q1

REPORT INFORMATION
  Report Type: Report from Study
  Country: US (occurrence: US)
  Receive Date: 20200128
  Receipt Date: 20200128
  Transmission Date: 20200409
  Serious: No
  Sender: FDA-Public Use
  Company Number: NVSC2020US019456

PATIENT
  Age: 30 Year
  Sex: Female

DRUGS (4)
  1. PAXIL [Concomitant]
     Active Substance: PAROXETINE HYDROCHLORIDE
     Indication: DEPRESSION
  2. GILENYA [Suspect]
     Active Substance: FINGOLIMOD HYDROCHLORIDE
     Indication: MULTIPLE SCLEROSIS
     Dosage: UNK, QD
     Route: 048
  3. METHYLPREDNISOLONE. [Concomitant]
     Active Substance: METHYLPREDNISOLONE
     Indication: MULTIPLE SCLEROSIS RELAPSE
     Dosage: UNK
     Route: 042
     Dates: start: 20180614, end: 20180618
  4. PAXIL [Concomitant]
     Active Substance: PAROXETINE HYDROCHLORIDE
     Indication: ANXIETY
     Dosage: 30 MG
     Route: 065
     Dates: start: 20181005

REACTIONS (12)
  - Muscular weakness [Unknown]
  - Muscle spasms [Unknown]
  - Vision blurred [Unknown]
  - Upper respiratory tract infection [Recovered/Resolved]
  - Depression [Unknown]
  - Head titubation [Unknown]
  - Migraine [Unknown]
  - Somnambulism [Unknown]
  - Tremor [Unknown]
  - Fall [Unknown]
  - Fatigue [Unknown]
  - Hypertension [Unknown]

NARRATIVE: CASE EVENT DATE: 20180531
